FAERS Safety Report 11718765 (Version 1)
Quarter: 2015Q4

REPORT INFORMATION
  Report Type: Spontaneous
  Country: JP (occurrence: JP)
  Receive Date: 20151110
  Receipt Date: 20151110
  Transmission Date: 20160304
  Serious: Yes (Other)
  Sender: FDA-Public Use
  Company Number: JP-GLAXOSMITHKLINE-JP2015JPN157522

PATIENT
  Age: 31 Year
  Sex: Male

DRUGS (1)
  1. CIGANON CLEAR1 [Suspect]
     Active Substance: NICOTINE
     Indication: EX-TOBACCO USER
     Route: 003

REACTIONS (2)
  - Seizure [Unknown]
  - Headache [Unknown]
